FAERS Safety Report 15826223 (Version 2)
Quarter: 2019Q1

REPORT INFORMATION
  Report Type: Spontaneous
  Country: JP (occurrence: JP)
  Receive Date: 20190115
  Receipt Date: 20190124
  Transmission Date: 20190417
  Serious: Yes (Death, Other)
  Sender: FDA-Public Use
  Company Number: JP-PFIZER INC-2019014622

PATIENT
  Age: 81 Year

DRUGS (1)
  1. MEROPENEM PFIZER [Suspect]
     Active Substance: MEROPENEM
     Indication: SEPSIS
     Dosage: 0.5 G, DAILY IN 3 DIVIDED DOSES
     Dates: end: 20181229

REACTIONS (3)
  - Pre-existing condition improved [Unknown]
  - Therapeutic response unexpected [Unknown]
  - Ileus [Fatal]
